FAERS Safety Report 8767512 (Version 1)
Quarter: 2012Q4

REPORT INFORMATION
  Report Type: 
  Country: AT (occurrence: AT)
  Receive Date: 20120904
  Receipt Date: 20120904
  Transmission Date: 20130627
  Serious: Yes (Death)
  Sender: FDA-Public Use
  Company Number: AT-ACTELION-A-CH2012-70629

PATIENT
  Age: 77 Year
  Sex: Male

DRUGS (1)
  1. TRACLEER [Suspect]
     Indication: PRODUCT USED FOR UNKNOWN INDICATION
     Route: 048

REACTIONS (5)
  - Cor pulmonale [Fatal]
  - Right ventricular failure [Fatal]
  - Renal failure [Fatal]
  - Diabetes mellitus [Fatal]
  - Atrial fibrillation [Fatal]
